FAERS Safety Report 6048113-5 (Version None)
Quarter: 2009Q1

REPORT INFORMATION
  Report Type: 
  Country: None (occurrence: None)
  Receive Date: 20090123
  Receipt Date: 20090112
  Transmission Date: 20090719
  Serious: Yes (Other)
  Sender: FDA-Public Use
  Company Number: US-BAYER-200910117BCC

PATIENT
  Age: 67 Year
  Sex: Male
  Weight: 99 kg

DRUGS (6)
  1. ASPIRIN TAB [Suspect]
     Indication: ISCHAEMIC HEART DISEASE PROPHYLAXIS
     Dosage: TOTAL DAILY DOSE: 325 MG  UNIT DOSE: 325 MG
     Dates: start: 19970101, end: 20080101
  2. ASPIRIN TAB [Suspect]
     Dosage: UNIT DOSE: 325 MG
     Dates: start: 20080101
  3. METOPROLOL TARTRATE [Concomitant]
  4. GLYBURIDE [Concomitant]
     Dosage: TOTAL DAILY DOSE: 3.75 MG  UNIT DOSE: 1.25 MG
  5. ISOSORBIDE DINITRATE [Concomitant]
  6. VASOTEC [Concomitant]
     Dosage: TOTAL DAILY DOSE: 5 MG  UNIT DOSE: 2.5 MG

REACTIONS (1)
  - HAEMATOCHEZIA [None]
